FAERS Safety Report 15716092 (Version 1)
Quarter: 2018Q4

REPORT INFORMATION
  Report Type: Spontaneous
  Country: FR (occurrence: FR)
  Receive Date: 20181213
  Receipt Date: 20181213
  Transmission Date: 20190205
  Serious: Yes (Life-Threatening)
  Sender: FDA-Public Use
  Company Number: FR-TEVA-2018-FR-984615

PATIENT
  Age: 58 Year
  Sex: Female
  Weight: 75 kg

DRUGS (11)
  1. FUROSEMIDE. [Concomitant]
     Active Substance: FUROSEMIDE
  2. PREDNISONE. [Suspect]
     Active Substance: PREDNISONE
     Indication: PREMEDICATION
     Dosage: 20 MILLIGRAM DAILY;
     Route: 048
     Dates: start: 20180908, end: 20180909
  3. EMEND [Suspect]
     Active Substance: APREPITANT
     Indication: ANTIEMETIC SUPPORTIVE CARE
     Dosage: 1 DOSAGE FORMS DAILY;
     Route: 048
     Dates: start: 20180904, end: 20180910
  4. ESIDREX [Concomitant]
     Active Substance: HYDROCHLOROTHIAZIDE
  5. VORICONAZOLE. [Suspect]
     Active Substance: VORICONAZOLE
     Indication: INFECTION PROPHYLAXIS
     Route: 041
     Dates: start: 20180904, end: 20180911
  6. ZELITREX [Concomitant]
     Active Substance: VALACYCLOVIR HYDROCHLORIDE
  7. CHOLURSO 250 MG, COMPRIM? PELLICUL? [Concomitant]
     Route: 065
  8. CEFTRIAXONE SODIQUE [Suspect]
     Active Substance: CEFTRIAXONE SODIUM
     Indication: INFECTION PROPHYLAXIS
     Dosage: 1 GRAM DAILY;
     Route: 041
     Dates: start: 20180909, end: 20180910
  9. TRAMADOL BASE [Concomitant]
     Active Substance: TRAMADOL
  10. POLARAMINE [Suspect]
     Active Substance: DEXCHLORPHENIRAMINE MALEATE
     Indication: PREMEDICATION
     Dosage: 1 DOSAGE FORMS DAILY;
     Route: 041
     Dates: start: 20180908, end: 20180909
  11. PARACETAMOL [Suspect]
     Active Substance: ACETAMINOPHEN
     Indication: PREMEDICATION
     Dosage: 1 GRAM DAILY;
     Route: 041
     Dates: start: 20180908, end: 20180909

REACTIONS (2)
  - Acute hepatic failure [Recovered/Resolved]
  - Hepatitis [Recovered/Resolved]

NARRATIVE: CASE EVENT DATE: 20180910
